FAERS Safety Report 19143891 (Version 1)
Quarter: 2021Q2

REPORT INFORMATION
  Report Type: Spontaneous
  Country: DE (occurrence: DE)
  Receive Date: 20210416
  Receipt Date: 20210416
  Transmission Date: 20210717
  Serious: Yes (Hospitalization)
  Sender: FDA-Public Use
  Company Number: DE-TEVA-2021-DE-1900448

PATIENT
  Age: 77 Year
  Sex: Male
  Weight: 95 kg

DRUGS (17)
  1. APIDRA [Concomitant]
     Active Substance: INSULIN GLULISINE
     Dosage: ACCORDING TO THE SCHEME, PRE?FILLED SYRINGES
     Route: 058
  2. ARANESP 40MIKROGRAMM [Concomitant]
     Dosage: 40 MG / WEEK, 1 X TUESDAY, PRE?FILLED SYRINGES
     Route: 058
  3. LEUPRONE HEXAL 3?MONATSDEPOT IN EINER FERTIGSPRITZE [Suspect]
     Active Substance: LEUPROLIDE ACETATE
     Dosage: 5 MG / EVERY 3 MONTHS, 1X EVERY 3 MONTHS, PRE?FILLED SYRINGES
     Route: 058
  4. ALLOPURINOL. [Concomitant]
     Active Substance: ALLOPURINOL
     Dosage: 100 MG, 1?0?0?09
  5. ZYTIGA [Suspect]
     Active Substance: ABIRATERONE ACETATE
     Dosage: 2 DOSAGE FORMS DAILY; 2?0?0?0
  6. LERCANIDIPINE [Concomitant]
     Active Substance: LERCANIDIPINE
     Dosage: 20 MILLIGRAM DAILY; 1?0?1?0
  7. FENTANYL. [Concomitant]
     Active Substance: FENTANYL
     Dosage: 12 UG / H, PATCH CHANGE EVERY 3 DAYS
     Route: 062
  8. SIMVASTATIN. [Concomitant]
     Active Substance: SIMVASTATIN
     Dosage: .5 DOSAGE FORMS DAILY; 20 MG, 0?0?0.5?0
  9. DEKRISTOL 20000I.E. [Concomitant]
     Dosage: 20,000 IU / WEEK, 1 X SUNDAY, TABLETS
  10. PREDNISOLON [Suspect]
     Active Substance: PREDNISOLONE
     Dosage: 2 DOSAGE FORMS DAILY; 5 MG, 2?0?0?0
  11. PANTOPRAZOL [Concomitant]
     Active Substance: PANTOPRAZOLE SODIUM
     Dosage: 40 MILLIGRAM DAILY; 1?0?0?0
  12. TORASEMID [Concomitant]
     Active Substance: TORSEMIDE
     Dosage: 30 MILLIGRAM DAILY; 1?1?0?1
  13. METAMIZOL [Concomitant]
     Active Substance: METAMIZOLE SODIUM
     Dosage: 160 GTT DAILY; 40?40?40?40, DROPS
  14. MACROGOL COMP?1A PHARMA [Concomitant]
     Dosage: 2 DOSAGE FORMS DAILY; 1?1?0?0, POWDER
  15. METOPROLOL. [Concomitant]
     Active Substance: METOPROLOL
     Dosage: 47.5 MILLIGRAM DAILY; 1?0?1?0
  16. NEPRESOL 25 [Concomitant]
     Dosage: 75 MILLIGRAM DAILY; 1?0?1?1
  17. CANDESARTAN. [Concomitant]
     Active Substance: CANDESARTAN
     Dosage: 32 MILLIGRAM DAILY; 1?0?1?0

REACTIONS (10)
  - Electrocardiogram QT prolonged [Recovering/Resolving]
  - Oedema peripheral [Recovering/Resolving]
  - Vomiting [Recovering/Resolving]
  - Impaired healing [Recovering/Resolving]
  - Urinary tract infection [Recovering/Resolving]
  - Pyrexia [Recovering/Resolving]
  - Electrolyte imbalance [Recovering/Resolving]
  - General physical health deterioration [Recovering/Resolving]
  - Cardiac failure [Recovering/Resolving]
  - Pleural effusion [Recovering/Resolving]
